FAERS Safety Report 15977454 (Version 1)
Quarter: 2019Q1

REPORT INFORMATION
  Report Type: Spontaneous
  Country: GB (occurrence: GB)
  Receive Date: 20190218
  Receipt Date: 20190218
  Transmission Date: 20190418
  Serious: Yes (Hospitalization)
  Sender: FDA-Public Use
  Company Number: GB-TEVA-2019-GB-1012351

PATIENT
  Age: 73 Year
  Sex: Male

DRUGS (8)
  1. WARFARIN [Suspect]
     Active Substance: WARFARIN
     Dosage: AS DIRECTED
     Route: 048
  2. FELODIPINE. [Concomitant]
     Active Substance: FELODIPINE
     Dosage: 2.5 MILLIGRAM DAILY; MORNING
     Route: 048
  3. SITAGLIPTIN [Concomitant]
     Active Substance: SITAGLIPTIN
     Dosage: 50 MILLIGRAM DAILY; MORNING
     Route: 048
  4. BRINZOLAMIDE [Concomitant]
     Active Substance: BRINZOLAMIDE
     Dosage: 1 GTT DAILY; BOTH EYES, 10MG/ML
     Route: 031
  5. METFORMIN [Concomitant]
     Active Substance: METFORMIN HYDROCHLORIDE
     Dosage: 2000 MILLIGRAM DAILY;
     Route: 048
  6. SIMVASTATIN. [Concomitant]
     Active Substance: SIMVASTATIN
     Dosage: 40 MILLIGRAM DAILY; NIGHT
     Route: 048
  7. BISOPROLOL [Concomitant]
     Active Substance: BISOPROLOL
     Dosage: 1.25 MILLIGRAM DAILY; MORNING
     Route: 048
  8. CODEINE [Concomitant]
     Active Substance: CODEINE
     Dosage: 30MG 4 TIMES DAILY AS NECESSARY
     Route: 048

REACTIONS (2)
  - Haematemesis [Unknown]
  - Gastrointestinal ulcer haemorrhage [Recovered/Resolved]
